FAERS Safety Report 5826929-5 (Version None)
Quarter: 2008Q3

REPORT INFORMATION
  Report Type: 
  Country: None (occurrence: None)
  Receive Date: 20080729
  Receipt Date: 20080729
  Transmission Date: 20090109
  Serious: Yes (Life-Threatening, Hospitalization, Other)
  Sender: FDA-Public Use
  Company Number: None

PATIENT

DRUGS (1)
  1. CYMBALTA [Suspect]
     Indication: SCIATICA
     Dosage: 60MG ONE EVERYDAY PO
     Route: 048
     Dates: start: 20080101, end: 20080726

REACTIONS (12)
  - CEREBRAL PALSY [None]
  - DRUG WITHDRAWAL SYNDROME [None]
  - FEELING ABNORMAL [None]
  - HYPERHIDROSIS [None]
  - HYPOAESTHESIA [None]
  - ILL-DEFINED DISORDER [None]
  - INAPPROPRIATE SCHEDULE OF DRUG ADMINISTRATION [None]
  - LOSS OF CONSCIOUSNESS [None]
  - MOOD SWINGS [None]
  - PARAESTHESIA [None]
  - TREMOR [None]
  - VISUAL IMPAIRMENT [None]
